FAERS Safety Report 16891492 (Version 3)
Quarter: 2020Q3

REPORT INFORMATION
  Report Type: Spontaneous
  Country: US (occurrence: US)
  Receive Date: 20191007
  Receipt Date: 20200821
  Transmission Date: 20201102
  Serious: Yes (Hospitalization, Other)
  Sender: FDA-Public Use
  Company Number: US-AEGERION PHARMACEUTICAL, INC-AEGR004511

PATIENT
  Age: 17 Year
  Sex: Female
  Weight: 41.3 kg

DRUGS (3)
  1. METRELEPTIN [Suspect]
     Active Substance: METRELEPTIN
     Indication: HEPATIC STEATOSIS
  2. METRELEPTIN [Suspect]
     Active Substance: METRELEPTIN
     Indication: PARTIAL LIPODYSTROPHY
  3. METRELEPTIN [Suspect]
     Active Substance: METRELEPTIN
     Indication: BLOOD TRIGLYCERIDES INCREASED

REACTIONS (11)
  - Autoimmune hepatitis [Unknown]
  - Neutralising antibodies positive [Unknown]
  - Hyperglycaemia [Recovering/Resolving]
  - Pseudocyst [Unknown]
  - Diabetic ketoacidosis [Unknown]
  - Hypertriglyceridaemia [Recovering/Resolving]
  - Condition aggravated [Recovering/Resolving]
  - Bacterial disease carrier [Unknown]
  - Therapy cessation [Unknown]
  - Type 1 diabetes mellitus [Unknown]
  - Pancreatitis relapsing [Unknown]
